FAERS Safety Report 5754962-0 (Version None)
Quarter: 2008Q2

REPORT INFORMATION
  Report Type: 
  Country: None (occurrence: None)
  Receive Date: 20080528
  Receipt Date: 20080528
  Transmission Date: 20081010
  Serious: Yes (Hospitalization)
  Sender: FDA-Public Use
  Company Number: None

PATIENT
  Age: 69 Year
  Sex: Male
  Weight: 152.9 kg

DRUGS (1)
  1. VANCOMYCIN [Suspect]
     Indication: CELLULITIS
     Dosage: 1000 MG      OTHER     IV
     Route: 042
     Dates: start: 20080322, end: 20080401

REACTIONS (3)
  - LINEAR IGA DISEASE [None]
  - RASH [None]
  - STAPHYLOCOCCAL INFECTION [None]
